FAERS Safety Report 4590265-8 (Version None)
Quarter: 2005Q1

REPORT INFORMATION
  Report Type: 
  Country: None (occurrence: None)
  Receive Date: 20050224
  Receipt Date: 20050121
  Transmission Date: 20050727
  Serious: Yes (Hospitalization)
  Sender: FDA-Public Use
  Company Number: US-AMGEN-US109123

PATIENT
  Sex: Male

DRUGS (14)
  1. DARBEPOETIN ALFA [Suspect]
     Indication: ANAEMIA
     Route: 030
     Dates: start: 20040928, end: 20050107
  2. HYDROCHLOROTHIAZIDE [Concomitant]
  3. LISINOPRIL [Concomitant]
     Route: 048
  4. METFORMIN HCL [Concomitant]
  5. NPH INSULIN [Concomitant]
  6. MAGNESIUM OXIDE [Concomitant]
  7. COUMADIN [Concomitant]
  8. CLONIDINE [Concomitant]
     Route: 048
  9. ATENOLOL [Concomitant]
     Route: 048
  10. QUININE SULFATE [Concomitant]
  11. TERAZOSIN [Concomitant]
     Route: 048
  12. RANITIDINE [Concomitant]
     Route: 048
  13. RANITIDINE [Concomitant]
     Route: 048
  14. SIMVASTATIN [Concomitant]
     Route: 048

REACTIONS (14)
  - AUTONOMIC NERVOUS SYSTEM IMBALANCE [None]
  - BLOOD MAGNESIUM DECREASED [None]
  - BLOOD PRESSURE INADEQUATELY CONTROLLED [None]
  - BRADYCARDIA [None]
  - CONFUSIONAL STATE [None]
  - DIARRHOEA [None]
  - DIZZINESS [None]
  - DIZZINESS POSTURAL [None]
  - ELECTROCARDIOGRAM T WAVE INVERSION [None]
  - HYPERTENSION [None]
  - MALIGNANT HYPERTENSION [None]
  - PNEUMOTHORAX [None]
  - SICK SINUS SYNDROME [None]
  - VENTRICULAR ARRHYTHMIA [None]
